FAERS Safety Report 8890846 (Version 1)
Quarter: 2012Q4

REPORT INFORMATION
  Report Type: Report from Study
  Country: IL (occurrence: IL)
  Receive Date: 20121106
  Receipt Date: 20121106
  Transmission Date: 20130627
  Serious: Yes (Hospitalization)
  Sender: FDA-Public Use
  Company Number: IL-VERTEX PHARMACEUTICAL INC.-000000000000001301

PATIENT
  Age: 58 Year
  Sex: Male
  Weight: 85 kg

DRUGS (14)
  1. BLINDED PRE-TREATMENT [Suspect]
     Indication: HEPATITIS C
     Dosage: Dosage Form: Tablet
     Route: 048
     Dates: start: 20120703, end: 20120717
  2. BLINDED TMC435 [Suspect]
     Indication: HEPATITIS C
     Dosage: Dosage Form: Tablet
     Route: 048
     Dates: start: 20120703, end: 20120717
  3. TELAPREVIR [Suspect]
     Indication: HEPATITIS C
     Dosage: Dosage Form: Tablet
     Route: 048
     Dates: start: 20120703, end: 20120717
  4. RIBAVIRIN [Suspect]
     Indication: HEPATITIS C
     Dosage: Dosage Form: Tablet
     Route: 048
     Dates: start: 20120703, end: 20120717
  5. PEGINTERFERON ALFA 2A [Suspect]
     Indication: HEPATITIS C
     Dosage: Dosage Form: Injection
     Dates: start: 20120703, end: 20120717
  6. METFORMIN [Concomitant]
     Indication: HEPATIC STEATOSIS
     Dosage: 850 mg, qd
     Route: 048
  7. URSODEOXYCHOLIC ACID [Concomitant]
     Indication: HEPATIC STEATOSIS
     Dosage: 250 mg, bid
     Route: 048
     Dates: end: 20120703
  8. COLCHICINE [Concomitant]
     Indication: HEPATIC STEATOSIS
     Dosage: 0.5 mg, bid
     Route: 048
     Dates: end: 20120703
  9. ATENOLOL [Concomitant]
     Indication: HYPERTENSION
     Dosage: 25 mg, bid
     Route: 048
  10. LOSARTAN POTASSIUM [Concomitant]
     Indication: HYPERTENSION
     Dosage: 50 mg, bid
     Route: 048
  11. AMLODIPINE MALEATE [Concomitant]
     Indication: HYPERTENSION
     Dosage: 10 mg, qd
     Route: 048
  12. DOXAZOSIN [Concomitant]
     Indication: HYPERTENSION
     Dosage: 2 mg, qd
     Route: 048
  13. COLECALCIFEROL [Concomitant]
     Indication: HEPATIC STEATOSIS
     Dosage: UNK, bid
     Route: 048
  14. PROCTOZORIN [Concomitant]
     Indication: ANAL PRURITUS
     Route: 061
     Dates: start: 20120711

REACTIONS (23)
  - Pancreatitis acute [Recovered/Resolved]
  - Renal failure acute [Recovered/Resolved]
  - Gamma-glutamyltransferase increased [None]
  - Aspartate aminotransferase increased [None]
  - Blood sodium decreased [None]
  - Alanine aminotransferase increased [None]
  - Base excess decreased [None]
  - Blood bilirubin increased [None]
  - Blood calcium decreased [None]
  - Calcium ionised decreased [None]
  - Blood glucose increased [None]
  - Blood bicarbonate decreased [None]
  - Haematocrit decreased [None]
  - Haemoglobin decreased [None]
  - Lymphocyte percentage decreased [None]
  - Mean cell haemoglobin increased [None]
  - Mean cell haemoglobin concentration increased [None]
  - PCO2 decreased [None]
  - PO2 decreased [None]
  - Red blood cell count decreased [None]
  - Blood uric acid increased [None]
  - White blood cell count increased [None]
  - Pancreatitis [None]
